FAERS Safety Report 14427229 (Version 1)
Quarter: 2018Q1

REPORT INFORMATION
  Report Type: Spontaneous
  Country: US (occurrence: US)
  Receive Date: 20180123
  Receipt Date: 20180123
  Transmission Date: 20180509
  Serious: No
  Sender: FDA-Public Use
  Company Number: US-IMPAX LABORATORIES, INC-2017-IPXL-03010

PATIENT
  Age: 55 Year
  Sex: Male

DRUGS (1)
  1. RYTARY [Suspect]
     Active Substance: CARBIDOPA\LEVODOPA
     Indication: PRODUCT USED FOR UNKNOWN INDICATION
     Dosage: 36.25/145 MG, 2 CAPSULES, 5 TIMES A DAY
     Route: 048

REACTIONS (4)
  - Dyskinesia [Unknown]
  - Bradykinesia [Unknown]
  - Drug ineffective [Unknown]
  - Depressed mood [Unknown]
